FAERS Safety Report 10884523 (Version 1)
Quarter: 2015Q1

REPORT INFORMATION
  Report Type: Spontaneous
  Country: AU (occurrence: AU)
  Receive Date: 20150304
  Receipt Date: 20150304
  Transmission Date: 20150721
  Serious: Yes (Other)
  Sender: FDA-Public Use
  Company Number: AU-SHIRE-AU201501538

PATIENT
  Age: 55 Year
  Sex: Male

DRUGS (2)
  1. C1 INHIBITOR (HUMAN) [Suspect]
     Active Substance: HUMAN C1-ESTERASE INHIBITOR
     Indication: ANGIOEDEMA
     Dosage: UNK UNK, AS REQ^D
     Route: 042
  2. ICATIBANT [Suspect]
     Active Substance: ICATIBANT ACETATE
     Indication: ANGIOEDEMA
     Dosage: UNK UNK, AS REQ^D
     Route: 058

REACTIONS (5)
  - Swelling face [Unknown]
  - Respiratory tract oedema [Unknown]
  - Inappropriate schedule of drug administration [Unknown]
  - Drug resistance [Unknown]
  - Product use issue [Not Recovered/Not Resolved]
